FAERS Safety Report 8357559-1 (Version None)
Quarter: 2012Q2

REPORT INFORMATION
  Report Type: 
  Country: None (occurrence: None)
  Receive Date: 20120514
  Receipt Date: 20120502
  Transmission Date: 20120825
  Serious: Yes (Hospitalization)
  Sender: FDA-Public Use
  Company Number: US-ROCHE-1039549

PATIENT
  Age: 74 Year
  Sex: Male
  Weight: 62.652 kg

DRUGS (2)
  1. MABTHERA [Suspect]
     Indication: CHRONIC LYMPHOCYTIC LEUKAEMIA
     Route: 042
     Dates: start: 20101013, end: 20110517
  2. MABTHERA [Suspect]
     Route: 042
     Dates: start: 20110223, end: 20110517

REACTIONS (1)
  - HYPOGAMMAGLOBULINAEMIA [None]
